FAERS Safety Report 23631631 (Version 1)
Quarter: 2024Q1

REPORT INFORMATION
  Report Type: Spontaneous
  Country: GB (occurrence: GB)
  Receive Date: 20240314
  Receipt Date: 20240314
  Transmission Date: 20240410
  Serious: Yes (Other)
  Sender: FDA-Public Use
  Company Number: None

PATIENT

DRUGS (7)
  1. LANSOPRAZOLE [Suspect]
     Active Substance: LANSOPRAZOLE
     Indication: Product used for unknown indication
  2. SINEMET CR [Concomitant]
     Active Substance: CARBIDOPA\LEVODOPA
     Dosage: 50MG/200MG
  3. TAMSULOSIN [Concomitant]
     Active Substance: TAMSULOSIN
  4. ATORVASTATIN [Concomitant]
     Active Substance: ATORVASTATIN
  5. ACETAMINOPHEN [Concomitant]
     Active Substance: ACETAMINOPHEN
  6. MIRTAZAPINE [Concomitant]
     Active Substance: MIRTAZAPINE
  7. DIAZEPAM [Concomitant]
     Active Substance: DIAZEPAM

REACTIONS (1)
  - Femoral neck fracture [Unknown]
